FAERS Safety Report 21624887 (Version 2)
Quarter: 2022Q4

REPORT INFORMATION
  Report Type: Report from Study
  Country: IE (occurrence: IE)
  Receive Date: 20221122
  Receipt Date: 20221212
  Transmission Date: 20230112
  Serious: Yes (Death, Hospitalization)
  Sender: FDA-Public Use
  Company Number: IE-AstraZeneca-2022A379565

PATIENT
  Age: 0 Year
  Sex: Male

DRUGS (2)
  1. SYNAGIS [Suspect]
     Active Substance: PALIVIZUMAB
     Indication: Trisomy 21
     Dosage: 15 MG/KG, AFTER 28 DAYS
     Dates: start: 20221012
  2. SYNAGIS [Suspect]
     Active Substance: PALIVIZUMAB
     Dosage: 15 MG/KG, AFTER 28 DAYS
     Dates: start: 20221114

REACTIONS (2)
  - Death [Fatal]
  - COVID-19 [Unknown]

NARRATIVE: CASE EVENT DATE: 20221106
